FAERS Safety Report 5344053-5 (Version None)
Quarter: 2007Q2

REPORT INFORMATION
  Report Type: 
  Country: None (occurrence: None)
  Receive Date: 20070604
  Receipt Date: 20070531
  Transmission Date: 20071010
  Serious: Yes (Other)
  Sender: FDA-Public Use
  Company Number: A0653719A

PATIENT
  Age: 10 Year
  Sex: Male

DRUGS (2)
  1. ADVAIR DISKUS 100/50 [Suspect]
     Indication: COUGH
     Dosage: 1PUFF TWICE PER DAY
     Route: 055
     Dates: start: 20070529
  2. SINGULAIR [Concomitant]

REACTIONS (4)
  - ANGER [None]
  - HALLUCINATION [None]
  - HOMICIDAL IDEATION [None]
  - PERSONALITY CHANGE [None]
